FAERS Safety Report 10279033 (Version 4)
Quarter: 2024Q3

REPORT INFORMATION
  Report Type: Spontaneous
  Country: JP (occurrence: JP)
  Receive Date: 20140707
  Receipt Date: 20240802
  Transmission Date: 20241017
  Serious: Yes (Other)
  Sender: MERCK
  Company Number: JP-009507513-1403JPN011664

PATIENT
  Age: 33 Year
  Sex: Female
  Weight: 61 kg

DRUGS (21)
  1. EMEND [Interacting]
     Active Substance: APREPITANT
     Indication: Prophylaxis of nausea and vomiting
     Dosage: DOSE UNSPECIFIED
     Route: 048
     Dates: start: 20121127, end: 20121127
  2. EMEND [Interacting]
     Active Substance: APREPITANT
     Dosage: UNK
     Route: 048
     Dates: start: 20121218, end: 20121218
  3. EMEND [Interacting]
     Active Substance: APREPITANT
     Dosage: UNK
     Route: 048
     Dates: start: 20130115, end: 20130115
  4. EMEND [Interacting]
     Active Substance: APREPITANT
     Dosage: UNK
     Route: 048
     Dates: start: 20130214, end: 20130214
  5. EMEND [Interacting]
     Active Substance: APREPITANT
     Dosage: 125 MG, QD
     Route: 048
     Dates: start: 20130318, end: 20130318
  6. EMEND [Interacting]
     Active Substance: APREPITANT
     Dosage: 80 MG, QD
     Route: 048
     Dates: start: 20130319, end: 20130319
  7. WARFARIN POTASSIUM [Interacting]
     Active Substance: WARFARIN POTASSIUM
     Indication: Renal vein thrombosis
     Dosage: 2.5 MG, PER DAY
     Route: 048
     Dates: start: 20121023
  8. WARFARIN POTASSIUM [Interacting]
     Active Substance: WARFARIN POTASSIUM
     Dosage: 4 MG FOR 1 DAY
     Route: 048
     Dates: start: 20130305, end: 20130408
  9. WARFARIN POTASSIUM [Interacting]
     Active Substance: WARFARIN POTASSIUM
     Dosage: 4.5 MG FOR 1 DAY
     Route: 048
     Dates: start: 20130409, end: 20130610
  10. WARFARIN POTASSIUM [Interacting]
     Active Substance: WARFARIN POTASSIUM
     Dosage: 1 MG FOR 1 DAY
     Route: 048
     Dates: start: 20130613, end: 20130826
  11. WARFARIN POTASSIUM [Interacting]
     Active Substance: WARFARIN POTASSIUM
     Dosage: 2 MG FOR 1 DAY
     Route: 048
     Dates: start: 20130827
  12. CISPLATIN [Concomitant]
     Active Substance: CISPLATIN
     Indication: Cervix carcinoma stage II
     Dosage: 4 CYCLES
     Route: 042
  13. FLUOROURACIL [Concomitant]
     Active Substance: FLUOROURACIL
     Indication: Cervix carcinoma stage II
     Dosage: 4 CYCLES
     Route: 042
  14. PACLITAXEL [Concomitant]
     Active Substance: PACLITAXEL
     Dosage: 5 CYCLES
     Route: 042
  15. CARBOPLATIN [Concomitant]
     Active Substance: CARBOPLATIN
     Dosage: 5 CYCLES
     Route: 042
  16. IRINOTECAN HYDROCHLORIDE [Concomitant]
     Active Substance: IRINOTECAN HYDROCHLORIDE
     Dosage: 10 CYCLES OF WEEKLY
     Route: 042
  17. ETOPOSIDE [Concomitant]
     Active Substance: ETOPOSIDE
     Dosage: 3 CYCLES
     Route: 042
  18. HERBALS [Concomitant]
     Active Substance: HERBALS
     Indication: Malaise
     Dosage: 2.5 MG, Q8H
     Route: 048
     Dates: start: 20130426
  19. TS-1 [Concomitant]
     Active Substance: GIMERACIL\OTERACIL POTASSIUM\TEGAFUR
     Dosage: 2 DF, Q12H
     Route: 048
     Dates: start: 20130508, end: 20130806
  20. LEVOFLOXACIN [Concomitant]
     Active Substance: LEVOFLOXACIN
     Indication: Pyrexia
     Dosage: 500 MG, EVERYDAY
     Route: 048
     Dates: start: 20130615, end: 20130619
  21. OXALIPLATIN [Concomitant]
     Active Substance: OXALIPLATIN
     Dosage: UNK
     Route: 042
     Dates: start: 20130508

REACTIONS (3)
  - Haemorrhage subcutaneous [Unknown]
  - Prothrombin time ratio decreased [Unknown]
  - Drug interaction [Unknown]

NARRATIVE: CASE EVENT DATE: 20130611
